FAERS Safety Report 5905272-X (Version None)
Quarter: 2008Q4

REPORT INFORMATION
  Report Type: 
  Country: None (occurrence: None)
  Receive Date: 20081001
  Receipt Date: 20080925
  Transmission Date: 20090506
  Serious: No
  Sender: FDA-Public Use
  Company Number: US-B.I. PHARMACEUTICALS,INC./RIDGEFIELD-2008-BP-14291BP

PATIENT
  Sex: Male

DRUGS (4)
  1. SPIRIVA [Suspect]
     Indication: EMPHYSEMA
     Dosage: 18MCG
     Route: 055
     Dates: end: 20080801
  2. METFORMIN HCL [Concomitant]
     Indication: DIABETES MELLITUS
  3. INSULIN [Concomitant]
     Indication: DIABETES MELLITUS
  4. AMARYL [Concomitant]
     Indication: DIABETES MELLITUS

REACTIONS (4)
  - COUGH [None]
  - DRUG INEFFECTIVE [None]
  - DYSGEUSIA [None]
  - DYSPNOEA [None]
